FAERS Safety Report 7631886-5 (Version None)
Quarter: 2011Q3

REPORT INFORMATION
  Report Type: 
  Country: None (occurrence: None)
  Receive Date: 20110725
  Receipt Date: 20110511
  Transmission Date: 20111222
  Serious: Yes (Other)
  Sender: FDA-Public Use
  Company Number: US-BRISTOL-MYERS SQUIBB COMPANY-15714553

PATIENT
  Age: 58 Year
  Sex: Female
  Weight: 61 kg

DRUGS (6)
  1. WARFARIN SODIUM [Suspect]
     Dosage: 1 DF = 1.2 MG 3 DAYS A WEEK  TO 2.5 MG 4 DAYS A WEEK
     Route: 048
  2. LISINOPRIL [Concomitant]
  3. AMIODARONE HCL [Concomitant]
  4. ASPIRIN [Concomitant]
  5. KLOR-CON M [Concomitant]
     Dosage: 1 DF = 10 UNIT NOT MENTIONED,KLOR CON M10 ER
  6. SPIRONOLACTONE [Concomitant]

REACTIONS (1)
  - HAEMORRHAGE [None]
